FAERS Safety Report 19508830 (Version 1)
Quarter: 2021Q3

REPORT INFORMATION
  Report Type: Report from Study
  Country: US (occurrence: US)
  Receive Date: 20210708
  Receipt Date: 20210708
  Transmission Date: 20211014
  Serious: Yes (Other)
  Sender: FDA-Public Use
  Company Number: US-MYLANLABS-2021M1039721

PATIENT
  Age: 12 Year
  Sex: Female

DRUGS (1)
  1. MERCAPTOPURINE. [Suspect]
     Active Substance: MERCAPTOPURINE
     Indication: ACUTE LYMPHOCYTIC LEUKAEMIA
     Dosage: 74 MILLIGRAM/SQ. METER, QD
     Route: 065

REACTIONS (3)
  - Alopecia [Recovered/Resolved]
  - Gastrointestinal disorder [Recovered/Resolved]
  - Hepatotoxicity [Recovered/Resolved]
